FAERS Safety Report 9340226 (Version 1)
Quarter: 2013Q2

REPORT INFORMATION
  Report Type: Other
  Country: PL (occurrence: PL)
  Receive Date: 20130610
  Receipt Date: 20130610
  Transmission Date: 20140414
  Serious: Yes (Hospitalization)
  Sender: FDA-Public Use
  Company Number: PL-ACTAVIS-2013-10302

PATIENT
  Age: 41 Year
  Sex: Female
  Weight: 67 kg

DRUGS (1)
  1. PACLITAXEL (UNKNOWN) [Suspect]
     Indication: OVARIAN CANCER
     Dosage: 133.54 MG, UNKNOWN
     Route: 042
     Dates: start: 20130425, end: 20130425

REACTIONS (3)
  - Hypoaesthesia [Unknown]
  - Dyspnoea [Unknown]
  - Flushing [Unknown]
